FAERS Safety Report 13615739 (Version 2)
Quarter: 2017Q2

REPORT INFORMATION
  Report Type: Report from Study
  Country: US (occurrence: US)
  Receive Date: 20170606
  Receipt Date: 20170620
  Transmission Date: 20170830
  Serious: Yes (Hospitalization, Other)
  Sender: FDA-Public Use
  Company Number: US-GILEAD-2017-0275371

PATIENT
  Age: 48 Year
  Sex: Male
  Weight: 87.75 kg

DRUGS (21)
  1. AMLODIPINE [Concomitant]
     Active Substance: AMLODIPINE BESYLATE
  2. BUDESONIDE ALMUS [Concomitant]
  3. CARVEDILOL. [Concomitant]
     Active Substance: CARVEDILOL
  4. ERGOCALCIFEROL. [Concomitant]
     Active Substance: ERGOCALCIFEROL
  5. RALTEGRAVIR. [Concomitant]
     Active Substance: RALTEGRAVIR
  6. TRIAMCINOLONE [Concomitant]
     Active Substance: TRIAMCINOLONE
  7. ABACAVIR/DOLUTEGRAVIR/LAMIVUDINE [Concomitant]
     Active Substance: ABACAVIR SULFATE\DOLUTEGRAVIR SODIUM\LAMIVUDINE
  8. FLUTICASONE. [Concomitant]
     Active Substance: FLUTICASONE
  9. GABAPENTIN. [Concomitant]
     Active Substance: GABAPENTIN
  10. HYDROXYZINE [Concomitant]
     Active Substance: HYDROXYZINE HYDROCHLORIDE
  11. TRAZODONE [Concomitant]
     Active Substance: TRAZODONE HYDROCHLORIDE
  12. AMBRISENTAN [Suspect]
     Active Substance: AMBRISENTAN
     Indication: PRODUCT USED FOR UNKNOWN INDICATION
     Dosage: 5 MG, QD
     Route: 048
     Dates: start: 20170330
  13. LINZESS [Concomitant]
     Active Substance: LINACLOTIDE
  14. RENVELA [Concomitant]
     Active Substance: SEVELAMER CARBONATE
  15. IRBESARTAN. [Concomitant]
     Active Substance: IRBESARTAN
  16. SODIUM BICARBONATE. [Concomitant]
     Active Substance: SODIUM BICARBONATE
  17. CYCLOBENZAPRINE. [Concomitant]
     Active Substance: CYCLOBENZAPRINE
  18. PRAMIPEXOLE. [Concomitant]
     Active Substance: PRAMIPEXOLE
  19. ZIDOVUDINE. [Concomitant]
     Active Substance: ZIDOVUDINE
  20. ALBUTEROL                          /00139501/ [Concomitant]
     Active Substance: ALBUTEROL
  21. INTELENCE [Concomitant]
     Active Substance: ETRAVIRINE

REACTIONS (4)
  - Dyspnoea [Unknown]
  - Dialysis [Unknown]
  - Neck pain [Unknown]
  - Chest pain [Unknown]
